FAERS Safety Report 8212895-4 (Version None)
Quarter: 2012Q1

REPORT INFORMATION
  Report Type: 
  Country: None (occurrence: None)
  Receive Date: 20120315
  Receipt Date: 20120309
  Transmission Date: 20120608
  Serious: Yes (Hospitalization)
  Sender: FDA-Public Use
  Company Number: FR-PFIZER INC-2012062753

PATIENT
  Age: 49 Year
  Sex: Female

DRUGS (4)
  1. EPIRUBICIN HYDROCHLORIDE [Suspect]
     Dosage: UNK
     Route: 042
     Dates: start: 20120120, end: 20120120
  2. CYCLOPHOSPHAMIDE [Suspect]
     Dosage: UNK
     Route: 042
     Dates: start: 20120120, end: 20120120
  3. DEXRAZOXANE HYDROCHLORIDE [Suspect]
     Dosage: UNK
     Route: 042
     Dates: start: 20120120, end: 20120120
  4. PLAVIX [Concomitant]

REACTIONS (1)
  - ANAPHYLACTIC SHOCK [None]
